FAERS Safety Report 14557011 (Version 5)
Quarter: 2018Q2

REPORT INFORMATION
  Report Type: Report from Study
  Country: CA (occurrence: CA)
  Receive Date: 20180221
  Receipt Date: 20180503
  Transmission Date: 20180711
  Serious: Yes (Hospitalization, Other)
  Sender: FDA-Public Use
  Company Number: CA-GLAXOSMITHKLINE-CA2017GSK063788

PATIENT
  Age: 70 Year
  Sex: Female

DRUGS (3)
  1. MEPOLIZUMAB [Suspect]
     Active Substance: MEPOLIZUMAB
     Indication: ASTHMA
     Dosage: 100 MG, Z, (MONTHLY ONCE)
     Route: 042
  2. ADVAIR HFA [Suspect]
     Active Substance: FLUTICASONE PROPIONATE\SALMETEROL XINAFOATE
     Indication: ASTHMA
     Dosage: UNK
  3. VENTOLIN [Suspect]
     Active Substance: ALBUTEROL SULFATE
     Indication: ASTHMA
     Dosage: UNK UNK, PRN

REACTIONS (14)
  - Chills [Unknown]
  - Insomnia [Recovering/Resolving]
  - Bacterial infection [Unknown]
  - Asthenia [Unknown]
  - Feeling cold [Unknown]
  - Hospitalisation [Unknown]
  - Loss of personal independence in daily activities [Unknown]
  - Drug effect decreased [Unknown]
  - Peripheral coldness [Unknown]
  - Respiratory tract congestion [Recovering/Resolving]
  - Bacterial test positive [Unknown]
  - Mobility decreased [Unknown]
  - Somnolence [Unknown]
  - Hypertension [Unknown]

NARRATIVE: CASE EVENT DATE: 20170422
